FAERS Safety Report 8563876-2 (Version None)
Quarter: 2012Q3

REPORT INFORMATION
  Report Type: 
  Country: None (occurrence: None)
  Receive Date: 20120727
  Receipt Date: 20120727
  Transmission Date: 20120928
  Serious: Yes (Other)
  Sender: FDA-Public Use
  Company Number: None

PATIENT
  Age: 40 Year
  Sex: Female
  Weight: 58.514 kg

DRUGS (1)
  1. ADVAIR DISKUS 250/50 [Suspect]
     Indication: ASTHMA
     Dosage: 1 PUFF, 2 TIMES A DAY, PO
     Route: 048
     Dates: start: 20120706, end: 20120720

REACTIONS (4)
  - MIDDLE INSOMNIA [None]
  - HEART RATE INCREASED [None]
  - CHEST DISCOMFORT [None]
  - THROAT TIGHTNESS [None]
